FAERS Safety Report 8007598-5 (Version None)
Quarter: 2011Q4

REPORT INFORMATION
  Report Type: 
  Country: None (occurrence: None)
  Receive Date: 20111227
  Receipt Date: 20111219
  Transmission Date: 20120403
  Serious: Yes (Hospitalization, Other)
  Sender: FDA-Public Use
  Company Number: US-BAYER-2011-123051

PATIENT
  Age: 36 Year
  Sex: Female
  Weight: 99.773 kg

DRUGS (2)
  1. YAZ [Suspect]
     Indication: MENSTRUATION IRREGULAR
     Dosage: UNK
     Dates: start: 20090401, end: 20091014
  2. MULTI-VITAMIN [Concomitant]
     Dosage: 1 TAB, DAILY
     Route: 048

REACTIONS (5)
  - ABDOMINAL PAIN [None]
  - DEEP VEIN THROMBOSIS [None]
  - CHEST PAIN [None]
  - PORTAL VEIN THROMBOSIS [None]
  - CHOLECYSTITIS CHRONIC [None]
